FAERS Safety Report 5403126-9 (Version None)
Quarter: 2007Q3

REPORT INFORMATION
  Report Type: 
  Country: None (occurrence: None)
  Receive Date: 20070801
  Receipt Date: 20070725
  Transmission Date: 20080115
  Serious: Yes (Other)
  Sender: FDA-Public Use
  Company Number: KE-BOEHRINGER INGELHEIM PHARMACEUTICALS, INC.-2007-DE-04357GD

PATIENT

DRUGS (2)
  1. NEVIRAPINE [Suspect]
     Indication: PROPHYLAXIS
  2. NEVIRAPINE [Suspect]
     Indication: HUMAN IMMUNODEFICIENCY VIRUS TRANSMISSION

REACTIONS (1)
  - DRUG INEFFECTIVE [None]
